FAERS Safety Report 6955471-3 (Version None)
Quarter: 2010Q3

REPORT INFORMATION
  Report Type: 
  Country: None (occurrence: None)
  Receive Date: 20100830
  Receipt Date: 20100818
  Transmission Date: 20110219
  Serious: Yes (Death, Hospitalization)
  Sender: FDA-Public Use
  Company Number: FR-PFIZER INC-2010103974

PATIENT
  Age: 64 Year
  Sex: Male

DRUGS (5)
  1. REVATIO [Suspect]
     Indication: PULMONARY HYPERTENSION
     Dosage: 20 MG, 3X/DAY
     Route: 048
     Dates: start: 20100301, end: 20100609
  2. REVATIO [Suspect]
     Dosage: 20 MG, 3X/DAY
     Route: 048
     Dates: start: 20100701
  3. REVATIO [Suspect]
     Dosage: 10 MG, 3X/DAY
     Route: 042
     Dates: start: 20100619, end: 20100701
  4. TRACLEER [Suspect]
     Indication: PULMONARY HYPERTENSION
     Dosage: UNK
     Dates: start: 20090301, end: 20100609
  5. TRACLEER [Suspect]
     Dosage: UNK
     Dates: start: 20100708

REACTIONS (7)
  - COLON CANCER [None]
  - GENERAL PHYSICAL HEALTH DETERIORATION [None]
  - PNEUMONIA BACTERIAL [None]
  - RENAL FAILURE [None]
  - SEPSIS [None]
  - SHOCK [None]
  - SUPERINFECTION [None]
